FAERS Safety Report 20882477 (Version 5)
Quarter: 2023Q1

REPORT INFORMATION
  Report Type: Spontaneous
  Country: CA (occurrence: CA)
  Receive Date: 20220527
  Receipt Date: 20230221
  Transmission Date: 20230418
  Serious: Yes (Other)
  Sender: FDA-Public Use
  Company Number: CA-PFIZER INC-202200737077

PATIENT
  Age: 65 Year
  Sex: Female

DRUGS (4)
  1. ABRILADA [Suspect]
     Active Substance: ADALIMUMAB-AFZB
     Indication: Rheumatoid arthritis
     Dosage: 40 MG, EVERY 2 WEEKS
     Route: 058
     Dates: start: 20220513, end: 202212
  2. CALCIUM [Concomitant]
     Active Substance: CALCIUM
     Dosage: 1 DF
  3. HUMIRA [Concomitant]
     Active Substance: ADALIMUMAB
     Dosage: UNK
  4. CHOLECALCIFEROL [Concomitant]
     Active Substance: CHOLECALCIFEROL
     Dosage: 1 DF

REACTIONS (8)
  - Lower limb fracture [Not Recovered/Not Resolved]
  - Skin disorder [Not Recovered/Not Resolved]
  - Pharyngitis [Recovered/Resolved]
  - Psoriasis [Unknown]
  - Erythema [Unknown]
  - Asthma [Unknown]
  - Pain [Unknown]
  - Fatigue [Unknown]

NARRATIVE: CASE EVENT DATE: 20220101
